FAERS Safety Report 15000154 (Version 1)
Quarter: 2018Q2

REPORT INFORMATION
  Report Type: Spontaneous
  Country: JP (occurrence: JP)
  Receive Date: 20180612
  Receipt Date: 20180612
  Transmission Date: 20180711
  Serious: Yes (Other)
  Sender: FDA-Public Use
  Company Number: JP-BAYER-2018-108421

PATIENT
  Sex: Male

DRUGS (2)
  1. WARFARIN [Interacting]
     Active Substance: WARFARIN
     Indication: CARDIAC DISORDER
     Route: 048
  2. BAYASPIRIN 100 MG [Suspect]
     Active Substance: ASPIRIN
     Indication: CARDIAC DISORDER
     Route: 048

REACTIONS (5)
  - Gastric haemorrhage [None]
  - Small intestine polyp [None]
  - Gastric antral vascular ectasia [None]
  - Labelled drug-drug interaction medication error [None]
  - Gastrointestinal polyp haemorrhage [None]
